FAERS Safety Report 12114035 (Version 1)
Quarter: 2016Q1

REPORT INFORMATION
  Report Type: Spontaneous
  Country: US (occurrence: None)
  Receive Date: 20160224
  Receipt Date: 20160224
  Transmission Date: 20160526
  Serious: Yes (Other)
  Sender: FDA-Public Use
  Company Number: None

PATIENT
  Age: 16 Year
  Sex: Male
  Weight: 49.9 kg

DRUGS (2)
  1. KEPPRA XR [Suspect]
     Active Substance: LEVETIRACETAM
     Indication: EPILEPSY
     Dosage: 3 PILLS TAKEN BY MOUTH
     Route: 048
     Dates: start: 20160220
  2. KEPPRA XR [Concomitant]
     Active Substance: LEVETIRACETAM

REACTIONS (1)
  - Drug withdrawal convulsions [None]

NARRATIVE: CASE EVENT DATE: 20160223
